FAERS Safety Report 7595732-0 (Version None)
Quarter: 2011Q3

REPORT INFORMATION
  Report Type: 
  Country: None (occurrence: None)
  Receive Date: 20110707
  Receipt Date: 20110624
  Transmission Date: 20111222
  Serious: Yes (Hospitalization, Other)
  Sender: FDA-Public Use
  Company Number: US-ELI_LILLY_AND_COMPANY-US201007001283

PATIENT
  Sex: Female

DRUGS (24)
  1. FORTEO [Suspect]
     Indication: OSTEOPOROSIS
     Dosage: 20 UG, DAILY (1/D)
     Route: 065
     Dates: start: 20090801
  2. SPIRIVA [Concomitant]
     Dosage: UNK, DAILY (1/D)
  3. PHENERGAN HCL [Concomitant]
     Dosage: 25 MG, EACH MORNING
  4. CARAFATE [Concomitant]
     Indication: GASTRIC ULCER
     Dosage: 1 G, 3/D
  5. PRAVACHOL [Concomitant]
     Indication: BLOOD CHOLESTEROL
     Dosage: 40 MG, EACH EVENING
  6. SYNTHROID [Concomitant]
     Dosage: 50 UG, DAILY (1/D)
  7. FORTEO [Suspect]
     Dosage: 20 UG, QD
     Route: 065
  8. PRILOSEC [Concomitant]
     Dosage: 20 MG, DAILY (1/D)
  9. LOVAZA [Concomitant]
     Indication: HYPERTENSION
     Dosage: UNK, DAILY (1/D)
  10. CARDIAC THERAPY [Concomitant]
  11. LASIX [Concomitant]
     Dosage: 40 MG, DAILY (1/D)
  12. VALIUM [Concomitant]
     Dosage: 5 MG, 2/D
  13. ASPIRIN [Concomitant]
     Dosage: 81 MG, DAILY (1/D)
  14. CALCIUM CARBONATE [Concomitant]
     Dosage: 1200 MG, DAILY (1/D)
  15. VITAMIN D [Concomitant]
     Dosage: 50000 U, WEEKLY (1/W)
  16. POTASSIUM                          /00031402/ [Concomitant]
     Dosage: 10 MEQ, DAILY (1/D)
  17. LAMICTAL [Concomitant]
     Dosage: 150 MG, DAILY (1/D)
  18. THYROID THERAPY [Concomitant]
  19. FORTEO [Suspect]
     Dosage: 20 UG, DAILY (1/D)
     Route: 065
  20. FORTEO [Suspect]
     Dosage: 20 UG, QD
     Route: 065
  21. MIRAPEX [Concomitant]
     Dosage: UNK, EACH EVENING
  22. FERROUS SULFATE TAB [Concomitant]
     Dosage: 325 MG, DAILY (1/D)
  23. NITROGLYCERIN [Concomitant]
     Dosage: UNK, AS NEEDED
  24. ANTIHYPERTENSIVES [Concomitant]

REACTIONS (30)
  - RECTAL HAEMORRHAGE [None]
  - GASTROENTERITIS VIRAL [None]
  - INJECTION SITE HAEMORRHAGE [None]
  - GROIN PAIN [None]
  - LUNG DISORDER [None]
  - DIARRHOEA [None]
  - OXYGEN SATURATION DECREASED [None]
  - ORAL FUNGAL INFECTION [None]
  - CARDIAC DISORDER [None]
  - SYSTEMIC LUPUS ERYTHEMATOSUS [None]
  - MUSCULAR WEAKNESS [None]
  - EMPHYSEMA [None]
  - MALAISE [None]
  - LABILE BLOOD PRESSURE [None]
  - VARICOSE VEIN [None]
  - INJECTION SITE PAIN [None]
  - BODY HEIGHT DECREASED [None]
  - NERVE COMPRESSION [None]
  - FALL [None]
  - PAIN IN EXTREMITY [None]
  - BACTERIAL INFECTION [None]
  - LUNG INFECTION [None]
  - BLOOD PRESSURE DECREASED [None]
  - LARYNGITIS [None]
  - BACK PAIN [None]
  - CHRONIC OBSTRUCTIVE PULMONARY DISEASE [None]
  - ABDOMINAL PAIN UPPER [None]
  - DYSPNOEA [None]
  - ERYTHEMA [None]
  - ARTHRALGIA [None]
